FAERS Safety Report 8437034-6 (Version None)
Quarter: 2012Q2

REPORT INFORMATION
  Report Type: 
  Country: None (occurrence: None)
  Receive Date: 20120614
  Receipt Date: 20120608
  Transmission Date: 20120825
  Serious: Yes (Hospitalization, Other)
  Sender: FDA-Public Use
  Company Number: FR-ELI_LILLY_AND_COMPANY-FR201206003167

PATIENT
  Age: 45 Year
  Sex: Female

DRUGS (1)
  1. CIALIS [Suspect]
     Indication: LIBIDO DECREASED
     Dosage: UNK, UNKNOWN
     Route: 048

REACTIONS (2)
  - OFF LABEL USE [None]
  - EPILEPSY [None]
